FAERS Safety Report 8157546-2 (Version None)
Quarter: 2012Q1

REPORT INFORMATION
  Report Type: 
  Country: None (occurrence: None)
  Receive Date: 20120222
  Receipt Date: 20110812
  Transmission Date: 20120608
  Serious: No
  Sender: FDA-Public Use
  Company Number: US-ASTRAZENECA-2011SE49022

PATIENT
  Sex: Female

DRUGS (2)
  1. ATACAND HTCZ [Concomitant]
  2. ATENOLOL [Suspect]
     Route: 065

REACTIONS (2)
  - PRURITUS [None]
  - RASH [None]
